FAERS Safety Report 6449647-1 (Version None)
Quarter: 2009Q4

REPORT INFORMATION
  Report Type: 
  Country: None (occurrence: None)
  Receive Date: 20091120
  Receipt Date: 20080328
  Transmission Date: 20100525
  Serious: Yes (Other)
  Sender: FDA-Public Use
  Company Number: PHHY2008US04426

PATIENT
  Age: 32 Year
  Sex: Female

DRUGS (5)
  1. TEGRETOL [Suspect]
     Indication: EPILEPSY
     Dosage: 600 MG, QD
  2. TEGRETOL [Suspect]
     Dosage: 800 MG, QD
  3. DILANTIN [Concomitant]
     Dosage: 200 MG, QD
  4. MULTI-VITAMINS [Concomitant]
  5. FOLIC ACID [Concomitant]

REACTIONS (3)
  - ABORTION SPONTANEOUS [None]
  - CONGENITAL ANOMALY [None]
  - DRUG EXPOSURE DURING PREGNANCY [None]
